FAERS Safety Report 5520344-X (Version None)
Quarter: 2007Q4

REPORT INFORMATION
  Report Type: 
  Country: None (occurrence: None)
  Receive Date: 20071116
  Receipt Date: 20071116
  Transmission Date: 20080405
  Serious: Yes (Disabling, Other)
  Sender: FDA-Public Use
  Company Number: None

PATIENT
  Sex: Female
  Weight: 74.8435 kg

DRUGS (1)
  1. ACTOS [Suspect]
     Indication: TYPE 2 DIABETES MELLITUS
     Dosage: 45MG 1 DAILY ORAL
     Route: 048
     Dates: start: 20010101, end: 20070901

REACTIONS (3)
  - ANKLE FRACTURE [None]
  - STRESS FRACTURE [None]
  - TIBIA FRACTURE [None]
